FAERS Safety Report 11395178 (Version 2)
Quarter: 2015Q4

REPORT INFORMATION
  Report Type: Other
  Country: US (occurrence: US)
  Receive Date: 20150819
  Receipt Date: 20151007
  Transmission Date: 20160304
  Serious: Yes (Hospitalization, Other)
  Sender: FDA-Public Use
  Company Number: US-SHIRE-US201510037

PATIENT
  Age: 32 Year
  Sex: Female

DRUGS (2)
  1. CINRYZE [Suspect]
     Active Substance: HUMAN C1-ESTERASE INHIBITOR
     Indication: PROPHYLAXIS
     Dosage: 2000 UNITS PRE AND POST MENSES
     Route: 042
     Dates: start: 20101129
  2. CINRYZE [Suspect]
     Active Substance: HUMAN C1-ESTERASE INHIBITOR
     Indication: HEREDITARY ANGIOEDEMA
     Dosage: 1000 UNITS EVERY 3-4 DAYS, OTHER, AND 2000 UNITS PRE AND POST MENSES
     Route: 042
     Dates: start: 20101129

REACTIONS (7)
  - Seizure [Unknown]
  - Vomiting [Unknown]
  - Prescribed overdose [Unknown]
  - Hereditary angioedema [Unknown]
  - Nausea [Not Recovered/Not Resolved]
  - Product use issue [Unknown]
  - Pain [Not Recovered/Not Resolved]

NARRATIVE: CASE EVENT DATE: 20101129
